FAERS Safety Report 5314734-8 (Version None)
Quarter: 2007Q2

REPORT INFORMATION
  Report Type: 
  Country: None (occurrence: None)
  Receive Date: 20070427
  Receipt Date: 20070415
  Transmission Date: 20071010
  Serious: Yes (Death)
  Sender: FDA-Public Use
  Company Number: 2007VX001175

PATIENT
  Age: 28 Year
  Sex: Male

DRUGS (3)
  1. INTERFERON ALFACON-1 (INTERFERON ALFACON-1) [Suspect]
     Indication: HEPATITIS C
     Dosage: 18 UG; QD; SC
     Route: 058
  2. HEROIN (DIAMORPHINE) [Suspect]
     Indication: DRUG ABUSER
  3. RIBAVIRIN [Concomitant]

REACTIONS (2)
  - DRUG ABUSER [None]
  - OVERDOSE [None]
